FAERS Safety Report 24280879 (Version 1)
Quarter: 2024Q3

REPORT INFORMATION
  Report Type: Spontaneous
  Country: US (occurrence: US)
  Receive Date: 20240904
  Receipt Date: 20240904
  Transmission Date: 20241017
  Serious: Yes (Other)
  Sender: AMGEN
  Company Number: US-AMGEN-USASP2024173613

PATIENT
  Age: 56 Year
  Sex: Male

DRUGS (2)
  1. BEVACIZUMAB [Suspect]
     Active Substance: BEVACIZUMAB
     Indication: Corneal neovascularisation
     Dosage: UNK, SUBCONJUNCTIVAL
     Route: 065
  2. DEXAMETHASONE [Concomitant]
     Active Substance: DEXAMETHASONE
     Indication: Corneal neovascularisation
     Dosage: UNK
     Route: 065

REACTIONS (4)
  - Detached Descemet^s membrane [Recovered/Resolved]
  - Procedural haemorrhage [Unknown]
  - Drug ineffective for unapproved indication [Unknown]
  - Off label use [Unknown]
